FAERS Safety Report 20333081 (Version 1)
Quarter: 2022Q1

REPORT INFORMATION
  Report Type: Spontaneous
  Country: US (occurrence: None)
  Receive Date: 20220113
  Receipt Date: 20220113
  Transmission Date: 20220423
  Serious: No
  Sender: FDA-Public Use
  Company Number: US-Neopharma Inc-000454

PATIENT
  Age: 59 Year
  Sex: Female

DRUGS (1)
  1. AUGMENTIN [Suspect]
     Active Substance: AMOXICILLIN\CLAVULANATE POTASSIUM
     Indication: Pyrexia
     Dosage: TOOK AUGMENTIN ONE TIME

REACTIONS (3)
  - Headache [Unknown]
  - Allergy to chemicals [Unknown]
  - Off label use [Unknown]
